FAERS Safety Report 4504466-8 (Version None)
Quarter: 2004Q4

REPORT INFORMATION
  Report Type: 
  Country: None (occurrence: None)
  Receive Date: 20041118
  Receipt Date: 20041115
  Transmission Date: 20050328
  Serious: Yes (Other)
  Sender: FDA-Public Use
  Company Number: CA-MERCK-0411CAN00156

PATIENT
  Sex: Female

DRUGS (1)
  1. VIOXX [Suspect]
     Route: 048

REACTIONS (5)
  - ANXIETY [None]
  - CHEST PAIN [None]
  - CONVULSION [None]
  - IRRITABLE BOWEL SYNDROME [None]
  - URINARY TRACT DISORDER [None]
